FAERS Safety Report 9863295 (Version 1)
Quarter: 2014Q1

REPORT INFORMATION
  Report Type: Spontaneous
  Country: US (occurrence: US)
  Receive Date: 20140203
  Receipt Date: 20140203
  Transmission Date: 20141002
  Serious: No
  Sender: FDA-Public Use
  Company Number: US-PFIZER INC-2014027268

PATIENT
  Age: 59 Year
  Sex: Female

DRUGS (5)
  1. ADVIL [Suspect]
     Dosage: UNK
  2. PSEUDOEPHEDRINE HYDROCHLORIDE [Suspect]
     Dosage: UNK
  3. BACTRIM DS [Suspect]
     Dosage: UNK
  4. SULFAMETHOXAZOLE [Suspect]
     Dosage: UNK
  5. ALLERGEN [Suspect]
     Dosage: UNK

REACTIONS (1)
  - Drug hypersensitivity [Unknown]
